FAERS Safety Report 9060291 (Version 1)
Quarter: 2013Q1

REPORT INFORMATION
  Report Type: Spontaneous
  Country: FR (occurrence: FR)
  Receive Date: 20130211
  Receipt Date: 20130211
  Transmission Date: 20140127
  Serious: Yes (Hospitalization, Other)
  Sender: FDA-Public Use
  Company Number: FR-ABBOTT-13P-056-1048742-00

PATIENT
  Age: 30 Year
  Sex: Female

DRUGS (3)
  1. KALETRA TABLETS 200/50 [Suspect]
     Indication: HIV INFECTION
  2. VIRAMUNE [Concomitant]
     Indication: HIV INFECTION
  3. EPIVIR [Concomitant]
     Indication: HIV INFECTION

REACTIONS (2)
  - Abortion spontaneous [Unknown]
  - Hepatitis [Unknown]
